FAERS Safety Report 23498303 (Version 4)
Quarter: 2024Q3

REPORT INFORMATION
  Report Type: Report from Study
  Country: NL (occurrence: NL)
  Receive Date: 20240207
  Receipt Date: 20240909
  Transmission Date: 20241017
  Serious: Yes (Hospitalization, Other)
  Sender: ABBVIE
  Company Number: NL-ABBVIE-5623006

PATIENT
  Sex: Male
  Weight: 83 kg

DRUGS (12)
  1. CARBIDOPA\LEVODOPA [Suspect]
     Active Substance: CARBIDOPA\LEVODOPA
     Indication: Parkinson^s disease
     Dosage: MD 10.0 ML; CD 5.0 ML/H; ED 2.0 ML??DURATION: REMAINS AT 16 HOURS
     Route: 050
     Dates: start: 20231004, end: 20240110
  2. CARBIDOPA\LEVODOPA [Suspect]
     Active Substance: CARBIDOPA\LEVODOPA
     Dosage: MD 10.0 ML; ED 2.0 ML; CND 5.3 ML/H??DURATION: REMAINS AT 16 HOURS
     Route: 050
     Dates: start: 20240130, end: 20240416
  3. CARBIDOPA\LEVODOPA [Suspect]
     Active Substance: CARBIDOPA\LEVODOPA
     Dosage: MD 10.0 ML; CND 5.5 ML/H; ED 2.0 ML?REMAINS AT 16 HOURS
     Route: 050
     Dates: start: 20240726, end: 20240903
  4. CARBIDOPA\LEVODOPA [Suspect]
     Active Substance: CARBIDOPA\LEVODOPA
     Dosage: MD 10.0 ML; CD 5.3 ML/H; ED 2.0 ML??DURATION: REMAINS AT 16 HOURS
     Route: 050
     Dates: start: 20240110, end: 20240130
  5. CARBIDOPA\LEVODOPA [Suspect]
     Active Substance: CARBIDOPA\LEVODOPA
     Dosage: MD 10.0 ML; CD 4.8 ML/H; ED 2.0 ML??DURATION: REMAINS AT 16 HOURS
     Route: 050
     Dates: start: 20230830, end: 20231004
  6. CARBIDOPA\LEVODOPA [Suspect]
     Active Substance: CARBIDOPA\LEVODOPA
     Route: 050
     Dates: start: 20221212
  7. CARBIDOPA\LEVODOPA [Suspect]
     Active Substance: CARBIDOPA\LEVODOPA
     Dosage: MD 10.0 ML; ED 2.0 ML; CND 5.5 ML/H?REMAINS AT 16 HOURS?FREQUENCY TEXT: ONE A DAY AT 6.30 PM
     Route: 050
     Dates: start: 20240416, end: 20240726
  8. CARBIDOPA\LEVODOPA [Suspect]
     Active Substance: CARBIDOPA\LEVODOPA
     Dosage: MD 10.0 ML; CND 5.5 ML/H; ED 2.0 ML?REMAINS AT 16 HOURS
     Route: 050
     Dates: start: 20240903
  9. BENSERAZIDE HYDROCHLORIDE\LEVODOPA [Concomitant]
     Active Substance: BENSERAZIDE HYDROCHLORIDE\LEVODOPA
     Indication: Parkinson^s disease
     Dosage: 2 AFTER DISCONNECTING PUMP?MADOPAR HYDRODYNAMICALLY BALANCED SYSTEM
     Route: 048
     Dates: start: 20191126
  10. TRIPADX1 [Concomitant]
     Indication: Product used for unknown indication
     Dosage: FREQUENCY: IF NECESSARY 3 TABLETS
     Route: 048
     Dates: start: 20191030
  11. BENSERAZIDE\LEVODOPA [Concomitant]
     Active Substance: BENSERAZIDE\LEVODOPA
     Indication: Parkinson^s disease
     Dosage: FREQUENCY: TWICE A DAY 5 TABLETS
     Route: 048
     Dates: start: 20191015, end: 20221212
  12. ENTACAPONE [Concomitant]
     Active Substance: ENTACAPONE
     Indication: Product used for unknown indication
     Dosage: ONE A DAY AT 6.30 PM
     Dates: start: 20221212

REACTIONS (24)
  - Shoulder fracture [Recovered/Resolved]
  - Restless legs syndrome [Unknown]
  - Speech disorder [Not Recovered/Not Resolved]
  - Gait disturbance [Recovered/Resolved]
  - Fall [Not Recovered/Not Resolved]
  - Asthenia [Not Recovered/Not Resolved]
  - Hyperphagia [Not Recovered/Not Resolved]
  - Muscle spasms [Not Recovered/Not Resolved]
  - Loss of personal independence in daily activities [Not Recovered/Not Resolved]
  - Cognitive disorder [Not Recovered/Not Resolved]
  - On and off phenomenon [Not Recovered/Not Resolved]
  - Weight decreased [Not Recovered/Not Resolved]
  - Memory impairment [Not Recovered/Not Resolved]
  - Diabetes mellitus [Not Recovered/Not Resolved]
  - Freezing phenomenon [Not Recovered/Not Resolved]
  - Reduced facial expression [Not Recovered/Not Resolved]
  - Tremor [Not Recovered/Not Resolved]
  - Somnolence [Not Recovered/Not Resolved]
  - Emotional disorder [Not Recovered/Not Resolved]
  - Stress [Not Recovered/Not Resolved]
  - Rehabilitation therapy [Recovered/Resolved]
  - Dyskinesia [Not Recovered/Not Resolved]
  - Parkinson^s disease [Not Recovered/Not Resolved]
  - Arthralgia [Not Recovered/Not Resolved]

NARRATIVE: CASE EVENT DATE: 20231101
